FAERS Safety Report 9827993 (Version 1)
Quarter: 2014Q1

REPORT INFORMATION
  Report Type: Report from Study
  Country: US (occurrence: US)
  Receive Date: 20140117
  Receipt Date: 20140117
  Transmission Date: 20141002
  Serious: Yes (Hospitalization)
  Sender: FDA-Public Use
  Company Number: US-ACTELION-A-NJ2014-93677

PATIENT
  Age: 43 Year
  Sex: Female

DRUGS (2)
  1. VELETRI [Suspect]
     Indication: PULMONARY ARTERIAL HYPERTENSION
     Dosage: 25 NG/KG, PER MIN
     Route: 042
     Dates: start: 20130905
  2. ADCIRCA [Concomitant]

REACTIONS (5)
  - Viral infection [Recovering/Resolving]
  - Dehydration [Unknown]
  - Pyrexia [Unknown]
  - Hypotension [Recovering/Resolving]
  - Presyncope [Recovering/Resolving]
